FAERS Safety Report 5590880-9 (Version None)
Quarter: 2007Q4

REPORT INFORMATION
  Report Type: 
  Country: None (occurrence: None)
  Receive Date: 20071214
  Receipt Date: 20070308
  Transmission Date: 20080405
  Serious: Yes (Other)
  Sender: FDA-Public Use
  Company Number: 35044

PATIENT
  Age: 47 Year
  Sex: Male

DRUGS (3)
  1. CISPLATIN [Suspect]
     Indication: SMALL CELL LUNG CANCER STAGE UNSPECIFIED
     Dosage: 140MG/DAY 1/MONTHLY/IV
     Route: 042
     Dates: start: 20060901, end: 20070306
  2. CISPLATIN [Suspect]
  3. ETOPOSIDE [Suspect]
     Indication: SMALL CELL LUNG CANCER STAGE UNSPECIFIED
     Dosage: 170MG/DAY 1-3/MONTHLY/IV
     Route: 042
     Dates: start: 20060901, end: 20070306

REACTIONS (1)
  - NEUTROPENIA [None]
